FAERS Safety Report 6699170-4 (Version None)
Quarter: 2010Q2

REPORT INFORMATION
  Report Type: 
  Country: None (occurrence: None)
  Receive Date: 20100427
  Receipt Date: 20100426
  Transmission Date: 20101027
  Serious: Yes (Hospitalization, Other)
  Sender: FDA-Public Use
  Company Number: US-NAPPMUNDI-USA-2010-0042351

PATIENT
  Sex: Male
  Weight: 90.703 kg

DRUGS (20)
  1. MS CONTIN [Suspect]
     Indication: OSTEOARTHRITIS
     Dosage: 15 MG, TID
     Dates: start: 20080305
  2. MS CONTIN [Suspect]
     Indication: NECK PAIN
  3. BLINDED THERAPY [Suspect]
     Indication: OSTEOARTHRITIS
     Dosage: UNK
     Dates: start: 20080121
  4. NEXIUM [Concomitant]
     Dosage: UNK
     Dates: start: 20010820
  5. DARVON [Concomitant]
     Dosage: UNK
     Dates: start: 19930106
  6. TRENTAL [Concomitant]
     Dosage: UNK
     Dates: start: 19950118
  7. TRAMADOL HCL [Concomitant]
     Dosage: UNK
     Dates: start: 19970415
  8. REGLAN [Concomitant]
     Dosage: UNK
     Dates: start: 19921209
  9. INDERAL                            /00030001/ [Concomitant]
     Dosage: UNK
     Dates: start: 19941213
  10. CRESTOR [Concomitant]
     Dosage: UNK
     Dates: start: 20040128
  11. ZOLOFT [Concomitant]
     Dosage: UNK
     Dates: start: 20031208
  12. LASIX [Concomitant]
     Dosage: UNK
     Dates: start: 20030815
  13. ASPIRIN [Concomitant]
     Dosage: UNK
     Dates: start: 19930101
  14. LOTREL [Concomitant]
     Dosage: UNK
     Dates: start: 20030821
  15. FOSAMAX [Concomitant]
     Dosage: UNK
     Dates: start: 20040512
  16. FEXMID [Concomitant]
     Dosage: UNK
     Dates: start: 20080206
  17. OXYGEN [Concomitant]
     Dosage: UNK
     Dates: start: 20080517
  18. MSIR CAPSULES [Concomitant]
     Dosage: UNK
     Dates: start: 20080305
  19. DEPAKOTE [Concomitant]
     Dosage: UNK
     Dates: start: 20080527
  20. HYOSCYAMINE [Concomitant]
     Indication: DRUG USE FOR UNKNOWN INDICATION
     Dosage: UNK
     Dates: start: 20000203

REACTIONS (2)
  - MUSCULOSKELETAL CHEST PAIN [None]
  - PERICARDIAL EFFUSION [None]
